FAERS Safety Report 4900331-2 (Version None)
Quarter: 2006Q1

REPORT INFORMATION
  Report Type: 
  Country: None (occurrence: None)
  Receive Date: 20060203
  Receipt Date: 20051121
  Transmission Date: 20060701
  Serious: Yes (Other)
  Sender: FDA-Public Use
  Company Number: FR-GLAXOSMITHKLINE-B0401550A

PATIENT
  Age: 3 Year
  Sex: Male
  Weight: 15 kg

DRUGS (2)
  1. AMOXICILLINE + AC CLAVULANIQUE [Suspect]
     Route: 048
     Dates: start: 20051001, end: 20051101
  2. PARACETAMOL [Concomitant]
     Route: 048
     Dates: start: 20051001, end: 20051001

REACTIONS (4)
  - ANGIONEUROTIC OEDEMA [None]
  - C-REACTIVE PROTEIN INCREASED [None]
  - FACE OEDEMA [None]
  - LEUKOCYTOSIS [None]
